FAERS Safety Report 4424779-8 (Version None)
Quarter: 2004Q3

REPORT INFORMATION
  Report Type: 
  Country: None (occurrence: None)
  Receive Date: 20040806
  Receipt Date: 20040722
  Transmission Date: 20050211
  Serious: Yes (Other)
  Sender: FDA-Public Use
  Company Number: AU_040607876

PATIENT
  Age: 63 Year
  Sex: Female

DRUGS (3)
  1. EVISTA [Suspect]
     Indication: OSTEOPENIA
     Dosage: 60 MG/1 DAY
     Dates: start: 20000606
  2. AVAPRO [Concomitant]
  3. ASPIRIN [Concomitant]

REACTIONS (4)
  - ARTHROPATHY [None]
  - BONE DENSITY DECREASED [None]
  - BREAST CANCER STAGE I [None]
  - CONDITION AGGRAVATED [None]
